FAERS Safety Report 9757547 (Version 2)
Quarter: 2013Q4

REPORT INFORMATION
  Report Type: Spontaneous
  Country: JP (occurrence: JP)
  Receive Date: 20131216
  Receipt Date: 20131220
  Transmission Date: 20140711
  Serious: Yes (Death, Life-Threatening, Hospitalization, Other)
  Sender: FDA-Public Use
  Company Number: JP-ROCHE-1316541

PATIENT
  Age: 70 Year
  Sex: Male
  Weight: 55 kg

DRUGS (1)
  1. XELODA [Suspect]
     Indication: RECTAL CANCER
     Dosage: 2 WEEKS ADMINISTRATION AND 1 WEEK REST
     Route: 048

REACTIONS (8)
  - Pneumonia [Fatal]
  - Multi-organ failure [Fatal]
  - Pancytopenia [Unknown]
  - Febrile neutropenia [Unknown]
  - Stomatitis [Unknown]
  - Diarrhoea [Unknown]
  - Decreased appetite [Unknown]
  - Palmar-plantar erythrodysaesthesia syndrome [Unknown]
